FAERS Safety Report 5167684-4 (Version None)
Quarter: 2006Q4

REPORT INFORMATION
  Report Type: 
  Country: None (occurrence: None)
  Receive Date: 20061201
  Receipt Date: 20061201
  Transmission Date: 20070319
  Serious: Yes (Hospitalization)
  Sender: FDA-Public Use
  Company Number: None

PATIENT
  Age: 68 Year
  Sex: Male
  Weight: 88.4514 kg

DRUGS (14)
  1. RITUXAN [Suspect]
     Indication: CHRONIC LYMPHOCYTIC LEUKAEMIA
     Dosage: 750 MG Q30DAYS IV
     Route: 042
     Dates: start: 20061114, end: 20061114
  2. FLUDARABINE [Suspect]
     Indication: CHRONIC LYMPHOCYTIC LEUKAEMIA
     Dosage: 50 MG Q30 DAYS IV
     Route: 042
     Dates: start: 20061114, end: 20061116
  3. NITROGLYCERIN SL [Concomitant]
  4. ASPIRIN [Concomitant]
  5. CHLORPHENIRAMINE MALEATE [Concomitant]
  6. FLUNISOLIDE [Concomitant]
  7. ISOSORBIDE [Concomitant]
  8. MOM [Concomitant]
  9. ROSUVASTATIN [Concomitant]
  10. VANCOMYCIN [Concomitant]
  11. DARBEOETIN ALFA [Concomitant]
  12. MESALAMINE [Concomitant]
  13. DIPHENHYDRAMINE HCL [Concomitant]
  14. CYCLOPHOSPHAMIDE [Concomitant]

REACTIONS (8)
  - ANAEMIA [None]
  - DYSPNOEA EXERTIONAL [None]
  - FEBRILE NEUTROPENIA [None]
  - INCREASED UPPER AIRWAY SECRETION [None]
  - PHARYNGOLARYNGEAL PAIN [None]
  - PRODUCTIVE COUGH [None]
  - SPUTUM DISCOLOURED [None]
  - THROMBOCYTOPENIA [None]
